FAERS Safety Report 10913344 (Version 1)
Quarter: 2015Q1

REPORT INFORMATION
  Report Type: Spontaneous
  Country: US (occurrence: None)
  Receive Date: 20150309
  Receipt Date: 20150309
  Transmission Date: 20150721
  Serious: No
  Sender: FDA-Public Use
  Company Number: US-20140030

PATIENT
  Age: 18 Year
  Sex: Female
  Weight: 42.2 kg

DRUGS (1)
  1. DOTAREM [Suspect]
     Active Substance: GADOTERATE MEGLUMINE
     Indication: NUCLEAR MAGNETIC RESONANCE IMAGING BRAIN
     Route: 042
     Dates: start: 20141212, end: 20141212

REACTIONS (1)
  - Urticaria [None]

NARRATIVE: CASE EVENT DATE: 20141212
